FAERS Safety Report 11520326 (Version 1)
Quarter: 2015Q3

REPORT INFORMATION
  Report Type: Spontaneous
  Country: US (occurrence: US)
  Receive Date: 20150918
  Receipt Date: 20150918
  Transmission Date: 20151125
  Serious: No
  Sender: FDA-Public Use
  Company Number: PHEH2015US017799

PATIENT
  Age: 65 Year
  Sex: Female

DRUGS (4)
  1. LASIX [Concomitant]
     Active Substance: FUROSEMIDE
     Indication: PRODUCT USED FOR UNKNOWN INDICATION
     Route: 065
  2. GLEEVEC [Suspect]
     Active Substance: IMATINIB MESYLATE
     Indication: NEOPLASM MALIGNANT
     Route: 065
  3. EUFLEXXA [Suspect]
     Active Substance: HYALURONATE SODIUM
     Indication: OSTEOARTHRITIS
     Dosage: 20 MG/2ML, QW
     Route: 014
     Dates: start: 20150810, end: 20150810
  4. METHADONE [Concomitant]
     Active Substance: METHADONE HYDROCHLORIDE
     Indication: PRODUCT USED FOR UNKNOWN INDICATION
     Route: 065

REACTIONS (6)
  - Pain in jaw [Not Recovered/Not Resolved]
  - Toothache [Not Recovered/Not Resolved]
  - Hypotension [Not Recovered/Not Resolved]
  - Peripheral swelling [Not Recovered/Not Resolved]
  - Head discomfort [Not Recovered/Not Resolved]
  - Musculoskeletal stiffness [Not Recovered/Not Resolved]

NARRATIVE: CASE EVENT DATE: 20150810
